FAERS Safety Report 6419583-5 (Version None)
Quarter: 2009Q4

REPORT INFORMATION
  Report Type: 
  Country: None (occurrence: None)
  Receive Date: 20091013
  Receipt Date: 20090219
  Transmission Date: 20100525
  Serious: Yes (Other)
  Sender: FDA-Public Use
  Company Number: 1000003667

PATIENT
  Age: 30 Year
  Sex: 0
  Weight: 97.0698 kg

DRUGS (8)
  1. LEXAPRO [Suspect]
     Indication: DEPRESSION
     Dosage: 10 MG (10 MG, 1 IN 1 D), ORAL, 5 MG (5 MG, 1 IN 1 D), ORAL
     Route: 048
     Dates: start: 20081212, end: 20081219
  2. LEXAPRO [Suspect]
     Indication: DEPRESSION
     Dosage: 10 MG (10 MG, 1 IN 1 D), ORAL, 5 MG (5 MG, 1 IN 1 D), ORAL
     Route: 048
     Dates: start: 20081220, end: 20090118
  3. HYDROXYCHLOROQUINE SULFATE [Concomitant]
  4. PREDNISONE [Concomitant]
  5. AZATHIOPRINE [Concomitant]
  6. TRAMADOL HCL [Concomitant]
  7. LANTUS [Concomitant]
  8. CALCIUM WITH VITAMIN D (TABLETS) [Concomitant]

REACTIONS (1)
  - SEROTONIN SYNDROME [None]
